FAERS Safety Report 9419015 (Version 1)
Quarter: 2013Q3

REPORT INFORMATION
  Report Type: Report from Study
  Country: US (occurrence: US)
  Receive Date: 20130725
  Receipt Date: 20130725
  Transmission Date: 20140515
  Serious: No
  Sender: FDA-Public Use
  Company Number: PHEH2013US015599

PATIENT
  Sex: Female

DRUGS (4)
  1. TASIGNA [Suspect]
     Indication: THYROID CANCER
     Dosage: 400 MG, BID
     Route: 048
     Dates: start: 20130626
  2. TASIGNA [Suspect]
     Indication: OFF LABEL USE
  3. PANTOPRAZOLE [Concomitant]
  4. LEVOTHYROXINE [Concomitant]

REACTIONS (2)
  - Chest pain [Unknown]
  - Dyspnoea [Unknown]
